FAERS Safety Report 5135778-5 (Version None)
Quarter: 2006Q4

REPORT INFORMATION
  Report Type: 
  Country: None (occurrence: None)
  Receive Date: 20061020
  Receipt Date: 20061012
  Transmission Date: 20070319
  Serious: Yes (Hospitalization, Other)
  Sender: FDA-Public Use
  Company Number: HQWYE412129SEP06

PATIENT
  Age: 50 Year
  Sex: Female
  Weight: 61 kg

DRUGS (15)
  1. RAPAMUNE [Suspect]
     Indication: PROPHYLAXIS AGAINST TRANSPLANT REJECTION
     Dosage: SEE IMAGE
     Route: 048
     Dates: start: 20050114, end: 20060923
  2. RAPAMUNE [Suspect]
     Indication: PROPHYLAXIS AGAINST TRANSPLANT REJECTION
     Dosage: SEE IMAGE
     Route: 048
     Dates: start: 20060924, end: 20060928
  3. RAPAMUNE [Suspect]
     Indication: PROPHYLAXIS AGAINST TRANSPLANT REJECTION
     Dosage: SEE IMAGE
     Route: 048
     Dates: start: 20060929
  4. DELTASONE [Suspect]
     Indication: PROPHYLAXIS AGAINST TRANSPLANT REJECTION
     Dosage: SEE IMAGE
     Route: 048
     Dates: end: 20061002
  5. DELTASONE [Suspect]
     Indication: PROPHYLAXIS AGAINST TRANSPLANT REJECTION
     Dosage: SEE IMAGE
     Route: 048
     Dates: start: 20061003
  6. TACROLIMUS (TACROLIMUS,) [Suspect]
     Indication: PROPHYLAXIS AGAINST TRANSPLANT REJECTION
  7. ZENAPAX [Suspect]
     Indication: PROPHYLAXIS AGAINST TRANSPLANT REJECTION
  8. DILAUDID [Concomitant]
  9. DILAUDID [Concomitant]
  10. CELEXA [Concomitant]
  11. OS-CAL (CALCIUM/ERGOCALCIFEROL) [Concomitant]
  12. LOPRESSOR [Concomitant]
  13. NOVOLOG [Concomitant]
  14. LIPITOR [Concomitant]
  15. LANTUS [Concomitant]

REACTIONS (9)
  - AORTIC ARTERIOSCLEROSIS [None]
  - CHOLELITHIASIS [None]
  - DRUG INEFFECTIVE [None]
  - HEPATIC STEATOSIS [None]
  - HERNIA [None]
  - KIDNEY TRANSPLANT REJECTION [None]
  - LIPASE INCREASED [None]
  - PYELONEPHRITIS FUNGAL [None]
  - TUBULOINTERSTITIAL NEPHRITIS [None]
